FAERS Safety Report 17541983 (Version 1)
Quarter: 2020Q1

REPORT INFORMATION
  Report Type: Report from Study
  Country: None (occurrence: US)
  Receive Date: 20200314
  Receipt Date: 20200314
  Transmission Date: 20200409
  Serious: Yes (Hospitalization, Other)
  Sender: FDA-Public Use
  Company Number: US-ABBVIE-20P-163-3308818-00

PATIENT
  Sex: Female

DRUGS (1)
  1. IMBRUVICA [Suspect]
     Active Substance: IBRUTINIB
     Indication: CHRONIC LYMPHOCYTIC LEUKAEMIA
     Route: 048
     Dates: start: 20190919

REACTIONS (6)
  - Device related infection [Unknown]
  - Impaired gastric emptying [Unknown]
  - Mobility decreased [Unknown]
  - Nephrolithiasis [Unknown]
  - Unevaluable event [Unknown]
  - Fall [Unknown]
